FAERS Safety Report 14007496 (Version 4)
Quarter: 2019Q2

REPORT INFORMATION
  Report Type: Spontaneous
  Country: US (occurrence: US)
  Receive Date: 20170925
  Receipt Date: 20190606
  Transmission Date: 20190711
  Serious: No
  Sender: FDA-Public Use
  Company Number: US-PFIZER INC-2017409778

PATIENT
  Age: 44 Year
  Sex: Male
  Weight: 88.5 kg

DRUGS (4)
  1. RAPAMUNE [Suspect]
     Active Substance: SIROLIMUS
     Indication: LIVER TRANSPLANT
     Dosage: 5 MG, 1X/DAY (5 TABLETS ONCE A DAY TO EQUAL THE 5 MG DOSE)
     Route: 048
     Dates: start: 2000
  2. RAPAMUNE [Suspect]
     Active Substance: SIROLIMUS
     Dosage: 5 MG, 1X/DAY(5 TABLETS BY MOUTH DAILY AT 9:30 IN THE MORNING)
     Route: 048
  3. RAPAMUNE [Suspect]
     Active Substance: SIROLIMUS
     Dosage: 5 MG, 1X/DAY(5 TABLETS BY MOUTH DAILY AT 9:30 IN THE MORNING)
     Route: 048
     Dates: start: 2018
  4. RAPAMUNE [Suspect]
     Active Substance: SIROLIMUS
     Indication: TRANSPLANT REJECTION
     Dosage: EITHER 3 OR 4, DAILY
     Route: 048

REACTIONS (10)
  - Stress [Unknown]
  - Renal disorder [Unknown]
  - Intentional product misuse [Unknown]
  - Weight decreased [Unknown]
  - Blood glucose increased [Unknown]
  - Sleep disorder [Unknown]
  - Product use in unapproved indication [Unknown]
  - Product prescribing error [Unknown]
  - Anxiety [Not Recovered/Not Resolved]
  - Off label use [Unknown]

NARRATIVE: CASE EVENT DATE: 2000
